FAERS Safety Report 18540607 (Version 1)
Quarter: 2020Q4

REPORT INFORMATION
  Report Type: Spontaneous
  Country: FR (occurrence: FR)
  Receive Date: 20201124
  Receipt Date: 20201124
  Transmission Date: 20210114
  Serious: Yes (Other)
  Sender: FDA-Public Use
  Company Number: FR-TEVA-2020-FR-1851891

PATIENT
  Age: 75 Year
  Sex: Male
  Weight: 66 kg

DRUGS (3)
  1. KARDEGIC [Concomitant]
     Active Substance: ASPIRIN DL-LYSINE
     Indication: SUPRA-AORTIC TRUNK STENOSIS
     Dosage: 1 DOSAGE FORMS
     Route: 048
     Dates: start: 20140224
  2. ROSUVASTATINE [Concomitant]
     Active Substance: ROSUVASTATIN
     Indication: SUPRA-AORTIC TRUNK STENOSIS
     Dosage: 1 DOSAGE FORMS
     Route: 048
     Dates: start: 20140224
  3. TAMSULOSINE [Suspect]
     Active Substance: TAMSULOSIN HYDROCHLORIDE
     Indication: BENIGN PROSTATIC HYPERPLASIA
     Dosage: 1 DOSAGE FORMS
     Route: 048
     Dates: start: 20200424, end: 20200427

REACTIONS (3)
  - Asthenia [Recovered/Resolved]
  - Hypotension [Recovered/Resolved]
  - Suicidal ideation [Recovered/Resolved]

NARRATIVE: CASE EVENT DATE: 20200427
